FAERS Safety Report 4448503-8 (Version None)
Quarter: 2004Q3

REPORT INFORMATION
  Report Type: 
  Country: None (occurrence: None)
  Receive Date: 20040914
  Receipt Date: 20040909
  Transmission Date: 20050211
  Serious: Yes (Other)
  Sender: FDA-Public Use
  Company Number: US-JNJFOC-20040608418

PATIENT
  Age: 67 Year
  Sex: Female
  Weight: 72.58 kg

DRUGS (16)
  1. REMICADE [Suspect]
     Route: 042
  2. REMICADE [Suspect]
     Route: 042
  3. REMICADE [Suspect]
     Indication: RHEUMATOID ARTHRITIS
     Route: 042
  4. METHOTREXATE [Concomitant]
     Indication: RHEUMATOID ARTHRITIS
  5. BEXTRA [Concomitant]
     Indication: RHEUMATOID ARTHRITIS
  6. FOLIC ACID [Concomitant]
     Indication: VITAMIN SUPPLEMENTATION
  7. ACCUPRIL [Concomitant]
  8. PROTONIX [Concomitant]
  9. PROZAC [Concomitant]
     Indication: ANXIETY
  10. ZYRTEC [Concomitant]
  11. ESTROTEST [Concomitant]
  12. ESTROTEST [Concomitant]
  13. ESTROTEST [Concomitant]
  14. CALCIUM [Concomitant]
  15. MULTIVITAMIN [Concomitant]
  16. FISH OIL [Concomitant]

REACTIONS (1)
  - AUTOIMMUNE DISORDER [None]
